FAERS Safety Report 10146999 (Version 2)
Quarter: 2014Q2

REPORT INFORMATION
  Report Type: Spontaneous
  Country: SE (occurrence: SE)
  Receive Date: 20140501
  Receipt Date: 20140501
  Transmission Date: 20141212
  Serious: Yes (Other)
  Sender: FDA-Public Use
  Company Number: SE-ASTRAZENECA-2014SE28039

PATIENT
  Age: 33 Year
  Sex: Female

DRUGS (1)
  1. XYLOCAINE [Suspect]
     Dosage: 10 MG/ML
     Route: 065

REACTIONS (1)
  - Paraesthesia [Not Recovered/Not Resolved]
